FAERS Safety Report 24704004 (Version 1)
Quarter: 2024Q4

REPORT INFORMATION
  Report Type: Spontaneous
  Country: US (occurrence: US)
  Receive Date: 20241206
  Receipt Date: 20241206
  Transmission Date: 20250115
  Serious: No
  Sender: RANBAXY
  Company Number: US-SUN PHARMACEUTICAL INDUSTRIES LTD-2024R1-480167

PATIENT
  Sex: Female

DRUGS (1)
  1. DOXYCYCLINE [Suspect]
     Active Substance: DOXYCYCLINE
     Indication: Product used for unknown indication
     Dosage: UNK (CAPSULE DESCRIPTION: BLUE)
     Route: 065

REACTIONS (3)
  - Abdominal pain upper [Unknown]
  - Abdominal distension [Unknown]
  - Diarrhoea [Unknown]
